FAERS Safety Report 18672978 (Version 1)
Quarter: 2020Q4

REPORT INFORMATION
  Report Type: Other
  Country: US (occurrence: US)
  Receive Date: 20201228
  Receipt Date: 20201228
  Transmission Date: 20210114
  Serious: Yes (Other)
  Sender: FDA-Public Use
  Company Number: US-ROCHE-2735973

PATIENT
  Sex: Male

DRUGS (1)
  1. ESBRIET [Suspect]
     Active Substance: PIRFENIDONE
     Indication: IDIOPATHIC PULMONARY FIBROSIS
     Dosage: 267 (MG) 3 PILLS 3 TIMES A DAY
     Route: 065
     Dates: start: 202006

REACTIONS (3)
  - Illness [Unknown]
  - Deafness unilateral [Unknown]
  - Arthralgia [Unknown]
